FAERS Safety Report 8921907 (Version 1)
Quarter: 2012Q4

REPORT INFORMATION
  Report Type: 
  Country: BR (occurrence: BR)
  Receive Date: 20121121
  Receipt Date: 20121121
  Transmission Date: 20130627
  Serious: Yes (Other)
  Sender: FDA-Public Use
  Company Number: BR-ABBOTT-12P-020-1008154-00

PATIENT
  Sex: Female
  Weight: 87 kg

DRUGS (3)
  1. DEPAKOTE ER [Suspect]
     Indication: BIPOLAR DISORDER
     Route: 048
  2. FLUOXETIN [Concomitant]
     Indication: DEPRESSION
     Route: 048
  3. RIVOTRIL [Concomitant]
     Indication: ANXIOLYTIC THERAPY
     Route: 048

REACTIONS (5)
  - Gallbladder disorder [Unknown]
  - Alopecia [Recovering/Resolving]
  - Hair texture abnormal [Not Recovered/Not Resolved]
  - Weight increased [Not Recovered/Not Resolved]
  - Hyperhidrosis [Unknown]
